FAERS Safety Report 23463197 (Version 1)
Quarter: 2024Q1

REPORT INFORMATION
  Report Type: Report from Study
  Country: US (occurrence: US)
  Receive Date: 20240131
  Receipt Date: 20240131
  Transmission Date: 20240410
  Serious: Yes (Hospitalization)
  Sender: FDA-Public Use
  Company Number: US-BAUSCHBL-2024BNL001146

PATIENT
  Age: 71 Year
  Sex: Female

DRUGS (7)
  1. XIIDRA [Suspect]
     Active Substance: LIFITEGRAST
     Indication: Dry eye
     Dosage: INSTILL 1 DROP BY OPHTHALMIC ROUTE 2 TIMES EVERY DRY INTO BOTH EYES 12 HOURS APART
     Route: 047
     Dates: start: 2019
  2. BIOTIN [Concomitant]
     Active Substance: BIOTIN
     Indication: Product used for unknown indication
  3. CRESTOR [Concomitant]
     Active Substance: ROSUVASTATIN CALCIUM
     Indication: Product used for unknown indication
     Dosage: TAKE 1 TAB DAILY BY ORAL ROUTE
     Route: 048
  4. LINZESS [Concomitant]
     Active Substance: LINACLOTIDE
     Indication: Product used for unknown indication
  5. LISINOPRIL AND HYDROCHLOROTHIAZIDE [Concomitant]
     Active Substance: HYDROCHLOROTHIAZIDE\LISINOPRIL
     Indication: Product used for unknown indication
  6. TRULICITY [Concomitant]
     Active Substance: DULAGLUTIDE
     Indication: Product used for unknown indication
  7. TYRVAYA [Concomitant]
     Active Substance: VARENICLINE TARTRATE
     Indication: Dry eye
     Dosage: 1 SPRAY EACH NOSTRIL
     Route: 045

REACTIONS (5)
  - Vision blurred [Unknown]
  - Eye irritation [Unknown]
  - Photophobia [Unknown]
  - Visual impairment [Unknown]
  - Punctal plug insertion [Unknown]

NARRATIVE: CASE EVENT DATE: 20240103
